FAERS Safety Report 25225399 (Version 2)
Quarter: 2025Q2

REPORT INFORMATION
  Report Type: Spontaneous
  Country: AR (occurrence: AR)
  Receive Date: 20250422
  Receipt Date: 20250613
  Transmission Date: 20250716
  Serious: Yes (Other)
  Sender: PFIZER
  Company Number: AR-PFIZER INC-202500083297

PATIENT
  Age: 74 Year
  Sex: Female

DRUGS (1)
  1. BRAFTOVI [Suspect]
     Active Substance: ENCORAFENIB
     Indication: Colorectal cancer metastatic
     Dosage: 300 MG, DAILY
     Dates: start: 20231108

REACTIONS (2)
  - Anaemia [Unknown]
  - Immune system disorder [Unknown]
